FAERS Safety Report 4373045-8 (Version None)
Quarter: 2004Q2

REPORT INFORMATION
  Report Type: 
  Country: None (occurrence: None)
  Receive Date: 20040603
  Receipt Date: 20040514
  Transmission Date: 20050107
  Serious: Yes (Hospitalization, Other)
  Sender: FDA-Public Use
  Company Number: US_0405103172

PATIENT
  Age: 78 Year
  Sex: Male

DRUGS (1)
  1. PERGOLIDE MESYLATE [Suspect]
     Indication: PARKINSON'S DISEASE
     Dates: start: 19990101

REACTIONS (8)
  - AORTIC VALVE SCLEROSIS [None]
  - CARDIAC VALVE DISEASE [None]
  - MITRAL VALVE INCOMPETENCE [None]
  - MITRAL VALVE SCLEROSIS [None]
  - PERICARDITIS CONSTRICTIVE [None]
  - RESTRICTIVE CARDIOMYOPATHY [None]
  - TRICUSPID VALVE INCOMPETENCE [None]
  - TRICUSPID VALVE SCLEROSIS [None]
